APPROVED DRUG PRODUCT: CARBINOXAMINE MALEATE
Active Ingredient: CARBINOXAMINE MALEATE
Strength: 4MG
Dosage Form/Route: TABLET;ORAL
Application: A090756 | Product #001 | TE Code: AA
Applicant: MISSION PHARMACAL CO
Approved: May 27, 2011 | RLD: No | RS: No | Type: RX